FAERS Safety Report 11141296 (Version 2)
Quarter: 2015Q4

REPORT INFORMATION
  Report Type: Spontaneous
  Country: US (occurrence: US)
  Receive Date: 20150527
  Receipt Date: 20151013
  Transmission Date: 20160304
  Serious: No
  Sender: FDA-Public Use
  Company Number: US-JNJFOC-20150518629

PATIENT
  Age: 2 Year
  Sex: Male

DRUGS (2)
  1. RISPERDAL [Suspect]
     Active Substance: RISPERIDONE
     Indication: ENCEPHALOPATHY
     Route: 048
     Dates: start: 200603, end: 200707
  2. INVEGA [Suspect]
     Active Substance: PALIPERIDONE
     Indication: ENCEPHALOPATHY
     Route: 048
     Dates: start: 201012, end: 201109

REACTIONS (2)
  - Gynaecomastia [Unknown]
  - Product use issue [Unknown]

NARRATIVE: CASE EVENT DATE: 200603
